FAERS Safety Report 25055239 (Version 11)
Quarter: 2025Q2

REPORT INFORMATION
  Report Type: Spontaneous
  Country: CA (occurrence: CA)
  Receive Date: 20250308
  Receipt Date: 20250522
  Transmission Date: 20250717
  Serious: Yes (Hospitalization, Other)
  Sender: CELLTRION
  Company Number: CA-PFIZER INC-202500040011

PATIENT

DRUGS (6)
  1. INFLECTRA [Suspect]
     Active Substance: INFLIXIMAB-DYYB
     Indication: Crohn^s disease
     Route: 042
     Dates: start: 20250113, end: 2025
  2. INFLECTRA [Suspect]
     Active Substance: INFLIXIMAB-DYYB
     Route: 042
     Dates: start: 20250306, end: 20250306
  3. INFLECTRA [Suspect]
     Active Substance: INFLIXIMAB-DYYB
     Route: 042
     Dates: start: 20250514
  4. PANTOPRAZOLE SODIUM [Concomitant]
     Active Substance: PANTOPRAZOLE SODIUM
  5. PULMICORT TURBUHALER [Concomitant]
     Active Substance: BUDESONIDE
  6. RHINOCORT [Concomitant]
     Active Substance: BUDESONIDE

REACTIONS (14)
  - Ear, nose and throat infection [Not Recovered/Not Resolved]
  - Ear infection [Recovered/Resolved]
  - Toxic shock syndrome [Recovering/Resolving]
  - Sinusitis [Not Recovered/Not Resolved]
  - Conjunctivitis [Recovering/Resolving]
  - Acne [Recovering/Resolving]
  - Deafness bilateral [Recovering/Resolving]
  - Tympanic membrane perforation [Recovering/Resolving]
  - Nasopharyngitis [Recovering/Resolving]
  - Oropharyngeal pain [Unknown]
  - Asthenia [Unknown]
  - Myalgia [Unknown]
  - Influenza [Recovered/Resolved]
  - Off label use [Unknown]

NARRATIVE: CASE EVENT DATE: 20250201
